FAERS Safety Report 17928246 (Version 2)
Quarter: 2020Q2

REPORT INFORMATION
  Report Type: Spontaneous
  Country: FR (occurrence: FR)
  Receive Date: 20200623
  Receipt Date: 20200625
  Transmission Date: 20200714
  Serious: Yes (Hospitalization, Other)
  Sender: FDA-Public Use
  Company Number: FR-ROCHE-2609348

PATIENT
  Sex: Male

DRUGS (1)
  1. ERIVEDGE [Suspect]
     Active Substance: VISMODEGIB
     Indication: BASAL CELL NAEVUS SYNDROME
     Route: 048
     Dates: start: 2013

REACTIONS (6)
  - Off label use [Unknown]
  - Intentional product use issue [Unknown]
  - Nervous system disorder [Unknown]
  - Cerebrovascular disorder [Unknown]
  - Cerebral haematoma [Unknown]
  - Hypertension [Unknown]

NARRATIVE: CASE EVENT DATE: 20200512
